FAERS Safety Report 9436227 (Version 2)
Quarter: 2013Q3

REPORT INFORMATION
  Report Type: Spontaneous
  Country: US (occurrence: TR)
  Receive Date: 20130801
  Receipt Date: 20130813
  Transmission Date: 20140515
  Serious: No
  Sender: FDA-Public Use
  Company Number: US-JNJFOC-20130714149

PATIENT
  Age: 24 Year
  Sex: Female

DRUGS (2)
  1. MEN^S ROGAINE EXTRA STRENGTH 5% UNSCENTED [Suspect]
     Route: 061
  2. MEN^S ROGAINE EXTRA STRENGTH 5% UNSCENTED [Suspect]
     Indication: ALOPECIA
     Dosage: SINCE 7 YEARS
     Route: 061
     Dates: start: 2006

REACTIONS (3)
  - Suspected counterfeit product [Unknown]
  - Therapeutic response unexpected [Unknown]
  - Wrong patient received medication [Unknown]
